FAERS Safety Report 8517828-9 (Version None)
Quarter: 2012Q3

REPORT INFORMATION
  Report Type: 
  Country: None (occurrence: None)
  Receive Date: 20120712
  Receipt Date: 20120712
  Transmission Date: 20120928
  Serious: Yes (Life-Threatening, Hospitalization)
  Sender: FDA-Public Use
  Company Number: None

PATIENT
  Age: 73 Year
  Sex: Female

DRUGS (1)
  1. FERUMOXYTOL [Suspect]
     Indication: ANAEMIA
     Dosage: TOTAL DOSES RECIEVED 2

REACTIONS (4)
  - HYPERHIDROSIS [None]
  - RASH [None]
  - DYSPNOEA [None]
  - INFUSION RELATED REACTION [None]
